FAERS Safety Report 8553430-0 (Version None)
Quarter: 2012Q2

REPORT INFORMATION
  Report Type: 
  Country: None (occurrence: None)
  Receive Date: 20120417
  Receipt Date: 20110417
  Transmission Date: 20120825
  Serious: Yes (Other)
  Sender: FDA-Public Use
  Company Number: 229

PATIENT
  Sex: Female
  Weight: 100.2449 kg

DRUGS (1)
  1. ALEVE [Suspect]
     Dosage: 220MG, ORAL
     Route: 048
     Dates: start: 20110203

REACTIONS (1)
  - DRUG HYPERSENSITIVITY [None]
